FAERS Safety Report 17490397 (Version 1)
Quarter: 2020Q1

REPORT INFORMATION
  Report Type: Spontaneous
  Country: US (occurrence: US)
  Receive Date: 20200303
  Receipt Date: 20200303
  Transmission Date: 20200409
  Serious: No
  Sender: FDA-Public Use
  Company Number: US-AKORN PHARMACEUTICALS-2019AKN00521

PATIENT
  Sex: Female
  Weight: 108.84 kg

DRUGS (4)
  1. MYORISAN [Suspect]
     Active Substance: ISOTRETINOIN
     Indication: ACNE CYSTIC
     Dosage: 40 MG, 2X/DAY
     Route: 048
     Dates: start: 20190212, end: 2019
  2. BREO ELLIPTA [Concomitant]
     Active Substance: FLUTICASONE FUROATE\VILANTEROL TRIFENATATE
  3. ALBUTEROL. [Concomitant]
     Active Substance: ALBUTEROL
  4. LEVONORGESTREL-ETHINYL [Concomitant]

REACTIONS (2)
  - Vision blurred [Recovering/Resolving]
  - Dyschromatopsia [Recovering/Resolving]

NARRATIVE: CASE EVENT DATE: 2019
